FAERS Safety Report 15010250 (Version 1)
Quarter: 2018Q3

REPORT INFORMATION
  Report Type: Spontaneous
  Country: US (occurrence: US)
  Receive Date: 20180614
  Receipt Date: 20180614
  Transmission Date: 20181010
  Serious: No
  Sender: FDA-Public Use
  Company Number: US-ZYDUS-016957

PATIENT
  Age: 74 Year
  Sex: Male

DRUGS (8)
  1. TAMSULOSIN/TAMSULOSIN HYDROCHLORIDE [Suspect]
     Active Substance: TAMSULOSIN HYDROCHLORIDE
     Indication: PROSTATOMEGALY
     Route: 048
     Dates: start: 20170929
  2. LEVOTHYROXINE. [Concomitant]
     Active Substance: LEVOTHYROXINE
     Indication: THYROIDECTOMY
  3. ASPIRIN. [Concomitant]
     Active Substance: ASPIRIN
     Indication: HEART INJURY
  4. DICYCLOVERINE [Concomitant]
     Active Substance: DICYCLOMINE HYDROCHLORIDE
     Indication: IRRITABLE BOWEL SYNDROME
  5. METOPROLOL. [Concomitant]
     Active Substance: METOPROLOL
     Indication: STENT PLACEMENT
  6. OMEPRAZOLE. [Concomitant]
     Active Substance: OMEPRAZOLE
     Indication: PRODUCT USED FOR UNKNOWN INDICATION
  7. TAMSULOSIN/TAMSULOSIN HYDROCHLORIDE [Suspect]
     Active Substance: TAMSULOSIN HYDROCHLORIDE
     Indication: PROSTATOMEGALY
     Route: 048
     Dates: start: 201708, end: 20170929
  8. EZETIMIBE. [Concomitant]
     Active Substance: EZETIMIBE
     Indication: STENT PLACEMENT

REACTIONS (3)
  - Pain in extremity [Not Recovered/Not Resolved]
  - Groin pain [Not Recovered/Not Resolved]
  - Dry mouth [Not Recovered/Not Resolved]

NARRATIVE: CASE EVENT DATE: 201708
